FAERS Safety Report 24810451 (Version 1)
Quarter: 2025Q1

REPORT INFORMATION
  Report Type: Spontaneous
  Country: EU (occurrence: EU)
  Receive Date: 20250106
  Receipt Date: 20250106
  Transmission Date: 20250409
  Serious: Yes (Life-Threatening)
  Sender: SEPTODONT
  Company Number: None

PATIENT

DRUGS (8)
  1. ARTICAINE HYDROCHLORIDE\EPINEPHRINE BITARTRATE [Suspect]
     Active Substance: ARTICAINE HYDROCHLORIDE\EPINEPHRINE BITARTRATE
     Indication: Surgery
     Route: 053
     Dates: start: 20241106, end: 20241106
  2. MIDAZOLAM [Suspect]
     Active Substance: MIDAZOLAM
     Indication: Surgery
     Route: 042
     Dates: start: 20241106, end: 20241106
  3. FENTANYL [Suspect]
     Active Substance: FENTANYL
     Indication: Surgery
     Route: 042
     Dates: start: 20241106, end: 20241106
  4. AMOXICILLIN [Suspect]
     Active Substance: AMOXICILLIN
     Indication: Surgery
     Route: 042
     Dates: start: 20241106, end: 20241106
  5. ACETAMINOPHEN [Suspect]
     Active Substance: ACETAMINOPHEN
     Indication: Surgery
     Route: 042
     Dates: start: 20241106, end: 20241106
  6. METAMIZOLE [Suspect]
     Active Substance: METAMIZOLE
     Indication: Surgery
     Route: 042
     Dates: start: 20241106, end: 20241106
  7. NITROGLYCERIN [Suspect]
     Active Substance: NITROGLYCERIN
     Indication: Acute myocardial infarction
     Dates: start: 20241106
  8. ACENOCOUMAROL [Concomitant]
     Active Substance: ACENOCOUMAROL
     Indication: Atrial fibrillation

REACTIONS (7)
  - Kounis syndrome [Recovered/Resolved]
  - Anaphylactic shock [Recovered/Resolved]
  - Hyperhidrosis [Recovered/Resolved]
  - Hypotension [Recovered/Resolved]
  - Bradycardia [Recovered/Resolved]
  - Bronchospasm [Recovered/Resolved]
  - Rash [Recovered/Resolved]

NARRATIVE: CASE EVENT DATE: 20241106
